FAERS Safety Report 9038334 (Version 1)
Quarter: 2013Q1

REPORT INFORMATION
  Report Type: Spontaneous
  Country: US (occurrence: US)
  Receive Date: 20130130
  Receipt Date: 20130130
  Transmission Date: 20140127
  Serious: No
  Sender: FDA-Public Use
  Company Number: US-ABBOTT-12P-163-0949543-00

PATIENT
  Age: 43 Year
  Sex: Male
  Weight: 102.15 kg

DRUGS (3)
  1. HUMIRA 40 MG/0.8 ML PEN [Suspect]
     Indication: RHEUMATOID ARTHRITIS
     Route: 058
     Dates: start: 2011
  2. IMURAN [Concomitant]
     Indication: HEPATITIS
  3. LEVOTHYROXINE [Concomitant]
     Indication: THYROID DISORDER

REACTIONS (4)
  - Nephrolithiasis [Not Recovered/Not Resolved]
  - Bronchitis [Not Recovered/Not Resolved]
  - Weight decreased [Unknown]
  - Pain [Not Recovered/Not Resolved]
